FAERS Safety Report 4831419-2 (Version None)
Quarter: 2005Q4

REPORT INFORMATION
  Report Type: 
  Country: None (occurrence: None)
  Receive Date: 20051116
  Receipt Date: 20051116
  Transmission Date: 20060501
  Serious: Yes (Hospitalization)
  Sender: FDA-Public Use
  Company Number: None

PATIENT
  Sex: Male
  Weight: 92.4 kg

DRUGS (1)
  1. CRESTOR [Suspect]

REACTIONS (1)
  - PANCREATITIS [None]
